FAERS Safety Report 6343172-4 (Version None)
Quarter: 2009Q3

REPORT INFORMATION
  Report Type: 
  Country: None (occurrence: None)
  Receive Date: 20090903
  Receipt Date: 20090807
  Transmission Date: 20100115
  Serious: Yes (Hospitalization)
  Sender: FDA-Public Use
  Company Number: APP200900537

PATIENT
  Sex: Male
  Weight: 3.5 kg

DRUGS (8)
  1. MAGNESIUM SULFATE [Suspect]
     Indication: ASTHMA
     Dosage: ONCE, TRANSPLACENTAL
     Route: 064
  2. HYDROCORTONE [Suspect]
     Indication: ASTHMA
     Dosage: INTRAVENOUS
     Route: 042
  3. SALBUTAMOL (SALBUTAMOL) [Suspect]
     Indication: ASTHMA
     Dosage: NEBULIZED
  4. IPRATROPIUM BROMIDE (IPRATROPRIUM BROMIDE) [Suspect]
     Indication: ASTHMA
     Dosage: NEBULIZED
  5. AMINOPHYLLIN [Suspect]
     Indication: ASTHMA
     Dosage: ONCE, INTRAVENOUS
     Route: 042
  6. SALBUTAMOL (SALBUTAMOL) [Suspect]
     Indication: ASTHMA
     Dosage: ONCE, INTRAVENOUS
     Route: 042
  7. AMOXICILLIN [Suspect]
     Indication: ASTHMA
     Dosage: ONCE, INTRAVENOUS
     Route: 042
  8. CLARITHROMYCIN [Suspect]
     Indication: ASTHMA
     Dosage: ONCE, INTRAVENOUS
     Route: 042

REACTIONS (6)
  - APGAR SCORE LOW [None]
  - CAESAREAN SECTION [None]
  - FOETAL DISTRESS SYNDROME [None]
  - FOETAL HEART RATE DECELERATION [None]
  - MATERNAL DRUGS AFFECTING FOETUS [None]
  - TACHYCARDIA FOETAL [None]
